FAERS Safety Report 5760857-9 (Version None)
Quarter: 2008Q2

REPORT INFORMATION
  Report Type: 
  Country: None (occurrence: None)
  Receive Date: 20080606
  Receipt Date: 20080606
  Transmission Date: 20081010
  Serious: No
  Sender: FDA-Public Use
  Company Number: None

PATIENT
  Age: 53 Year
  Sex: Female
  Weight: 62.5964 kg

DRUGS (5)
  1. HEPARIN LOCK-FLUSH [Suspect]
     Indication: INTRAVENOUS CATHETER MANAGEMENT
     Dosage: 5 ML SYRINGE DAILY IV
     Route: 042
     Dates: start: 20070601, end: 20070701
  2. VERAPAMIL [Concomitant]
  3. ZEMPLAR [Concomitant]
  4. CLARITIN [Concomitant]
  5. TIGECYCLINE [Concomitant]

REACTIONS (5)
  - DYSPNOEA [None]
  - FATIGUE [None]
  - NAUSEA [None]
  - ORAL INTAKE REDUCED [None]
  - RENAL IMPAIRMENT [None]
